FAERS Safety Report 18096489 (Version 1)
Quarter: 2020Q3

REPORT INFORMATION
  Report Type: Spontaneous
  Country: US (occurrence: US)
  Receive Date: 20200731
  Receipt Date: 20200731
  Transmission Date: 20201103
  Serious: No
  Sender: FDA-Public Use
  Company Number: US-SA-2020SA198782

PATIENT

DRUGS (17)
  1. PATANASE [Concomitant]
     Active Substance: OLOPATADINE HYDROCHLORIDE
  2. ANAPROX [Concomitant]
     Active Substance: NAPROXEN SODIUM
  3. AXERT [Concomitant]
     Active Substance: ALMOTRIPTAN MALATE
  4. FEXOFENADINE [Concomitant]
     Active Substance: FEXOFENADINE HYDROCHLORIDE
  5. LEVOTHYROXINE. [Concomitant]
     Active Substance: LEVOTHYROXINE
  6. AJOVY [Concomitant]
     Active Substance: FREMANEZUMAB-VFRM
  7. BUPROVIL [Concomitant]
     Active Substance: IBUPROFEN
  8. OMEPRAZOLE. [Concomitant]
     Active Substance: OMEPRAZOLE
  9. LORAZEPAM. [Concomitant]
     Active Substance: LORAZEPAM
  10. AIMOVIG [Concomitant]
     Active Substance: ERENUMAB-AOOE
  11. VITAMIN D3 [Concomitant]
     Active Substance: CHOLECALCIFEROL
  12. PROPRANOLOL [Concomitant]
     Active Substance: PROPRANOLOL HYDROCHLORIDE
  13. MULTIVITAMIN [ASCORBIC ACID;BIOTIN;CALCIUM PANTOTHENATE;CYANOCOBALAMIN [Concomitant]
     Active Substance: VITAMINS
  14. DUPIXENT [Suspect]
     Active Substance: DUPILUMAB
     Indication: NASAL POLYPS
     Dosage: 300 MG, QOW
     Route: 058
     Dates: start: 20200615, end: 2020
  15. LEXAPRO [Concomitant]
     Active Substance: ESCITALOPRAM OXALATE
  16. DULERA [Concomitant]
     Active Substance: FORMOTEROL FUMARATE DIHYDRATE\MOMETASONE FUROATE
  17. ESCITALOPRAM [Concomitant]
     Active Substance: ESCITALOPRAM OXALATE

REACTIONS (1)
  - Rash [Not Recovered/Not Resolved]

NARRATIVE: CASE EVENT DATE: 2020
